FAERS Safety Report 12699132 (Version 2)
Quarter: 2016Q3

REPORT INFORMATION
  Report Type: Report from Study
  Country: PA (occurrence: PA)
  Receive Date: 20160830
  Receipt Date: 20160913
  Transmission Date: 20161109
  Serious: Yes (Other)
  Sender: FDA-Public Use
  Company Number: PHHY2016PA116860

PATIENT
  Age: 63 Year
  Sex: Female

DRUGS (3)
  1. METFORMIN [Suspect]
     Active Substance: METFORMIN HYDROCHLORIDE
     Indication: DIABETES MELLITUS
     Dosage: 500 MG, Q12H
     Route: 048
  2. SANDOSTATIN LAR DEPOT [Suspect]
     Active Substance: OCTREOTIDE ACETATE
     Indication: PITUITARY TUMOUR BENIGN
     Dosage: 20 MG, QMO
     Route: 030
     Dates: start: 20150527
  3. LISINOPRIL. [Concomitant]
     Active Substance: LISINOPRIL
     Indication: CATARACT
     Route: 065

REACTIONS (13)
  - Tachycardia [Unknown]
  - Somnolence [Unknown]
  - Malaise [Unknown]
  - Cataract [Unknown]
  - Dyspnoea [Unknown]
  - Fatigue [Unknown]
  - Glaucoma [Unknown]
  - Asthenia [Unknown]
  - Blood glucose increased [Unknown]
  - Abdominal pain upper [Unknown]
  - Anxiety [Unknown]
  - Flatulence [Unknown]
  - Syncope [Unknown]
